FAERS Safety Report 5984797-5 (Version None)
Quarter: 2008Q4

REPORT INFORMATION
  Report Type: 
  Country: None (occurrence: None)
  Receive Date: 20081202
  Receipt Date: 20081117
  Transmission Date: 20090506
  Serious: Yes (Other)
  Sender: FDA-Public Use
  Company Number: DSJ-2008-12753

PATIENT
  Age: 59 Year
  Sex: Female

DRUGS (2)
  1. OLMESARTAN MEDOXOMIL [Suspect]
     Indication: HYPERTENSION
     Dosage: 20 MG, PER ORAL
     Route: 048
     Dates: start: 20080801, end: 20081021
  2. ETIZOLAM (ETIZOLAM) (ETIZOLAM) [Concomitant]

REACTIONS (1)
  - THROMBOCYTOPENIA [None]
